FAERS Safety Report 10559418 (Version 1)
Quarter: 2014Q4

REPORT INFORMATION
  Report Type: Other
  Country: GB (occurrence: GB)
  Receive Date: 20141103
  Receipt Date: 20141103
  Transmission Date: 20150529
  Serious: Yes (Other)
  Sender: FDA-Public Use
  Company Number: GB-MYLANLABS-2014M1008220

PATIENT

DRUGS (2)
  1. ESCITALOPRAM [Interacting]
     Active Substance: ESCITALOPRAM OXALATE
     Indication: DEPRESSION
     Dosage: 20 MG, QD
  2. OMEPRAZOLE. [Suspect]
     Active Substance: OMEPRAZOLE
     Indication: GASTRITIS
     Dosage: 40 MG, QD
     Dates: start: 20140820, end: 20141007

REACTIONS (8)
  - Agitation [Unknown]
  - Headache [Unknown]
  - Mental disorder [Unknown]
  - Serotonin syndrome [Recovering/Resolving]
  - Confusional state [Unknown]
  - Dyskinesia [Unknown]
  - Labelled drug-drug interaction medication error [Unknown]
  - Insomnia [Unknown]
